FAERS Safety Report 6096447-0 (Version None)
Quarter: 2009Q1

REPORT INFORMATION
  Report Type: 
  Country: None (occurrence: None)
  Receive Date: 20090225
  Receipt Date: 20090225
  Transmission Date: 20090719
  Serious: Yes (Hospitalization)
  Sender: FDA-Public Use
  Company Number: None

PATIENT
  Sex: Female
  Weight: 63.5036 kg

DRUGS (2)
  1. MELOXICAM [Suspect]
     Indication: BACK DISORDER
     Dosage: 7.5 MG
     Dates: start: 20080201
  2. MELOXICAM [Suspect]
     Indication: BACK DISORDER
     Dosage: 7.5 MG
     Dates: start: 20090201

REACTIONS (8)
  - ARTHRALGIA [None]
  - GASTRIC DISORDER [None]
  - GASTROOESOPHAGEAL REFLUX DISEASE [None]
  - INFLUENZA [None]
  - MUSCULOSKELETAL PAIN [None]
  - NECK PAIN [None]
  - OEDEMA PERIPHERAL [None]
  - PAIN IN EXTREMITY [None]
